FAERS Safety Report 16537858 (Version 2)
Quarter: 2019Q3

REPORT INFORMATION
  Report Type: Spontaneous
  Country: JP (occurrence: JP)
  Receive Date: 20190708
  Receipt Date: 20190801
  Transmission Date: 20191004
  Serious: Yes (Other)
  Sender: FDA-Public Use
  Company Number: JP-SA-2019SA157900

PATIENT
  Age: 76 Year
  Sex: Female

DRUGS (22)
  1. CELECOXIB. [Suspect]
     Active Substance: CELECOXIB
     Dosage: 200 MG, QD
     Route: 065
     Dates: start: 201902, end: 201906
  2. MARZULENE S [Concomitant]
     Active Substance: GLUTAMINE\SODIUM GUALENATE
     Dosage: UNK
     Dates: start: 201812, end: 201812
  3. CELECOXIB. [Suspect]
     Active Substance: CELECOXIB
     Indication: PRODUCT USED FOR UNKNOWN INDICATION
     Dosage: 200 MG, QD
     Route: 065
  4. SHAKUYAKUKANZOTO [Suspect]
     Active Substance: HERBALS
     Dosage: UNK UNK, UNK
     Route: 048
     Dates: start: 201902, end: 201906
  5. VIVIANT [Suspect]
     Active Substance: BAZEDOXIFENE
     Indication: PRODUCT USED FOR UNKNOWN INDICATION
     Dosage: 20 MG, QD
     Route: 048
     Dates: start: 201810, end: 201812
  6. TSUKUSHI AM [Concomitant]
     Dosage: UNK
     Dates: start: 201812, end: 201812
  7. MOHRUS [Concomitant]
     Active Substance: KETOPROFEN
     Dosage: UNK
     Dates: start: 201809, end: 201811
  8. BIOFERMIN [LACTOMIN] [Concomitant]
     Dosage: UNK
     Dates: start: 201902, end: 201906
  9. CELECOXIB. [Suspect]
     Active Substance: CELECOXIB
     Dosage: 200 MG, QD
     Route: 065
     Dates: start: 201812, end: 201812
  10. PREGABALIN. [Suspect]
     Active Substance: PREGABALIN
     Indication: SCIATICA
     Dosage: 150 MG, UNK
     Route: 048
     Dates: start: 20180601, end: 201810
  11. SHAKUYAKUKANZOTO [Suspect]
     Active Substance: HERBALS
     Indication: PRODUCT USED FOR UNKNOWN INDICATION
     Dosage: UNK UNK, UNK
     Route: 048
     Dates: start: 201811, end: 201811
  12. ZOLPIDEM TARTRATE. [Suspect]
     Active Substance: ZOLPIDEM TARTRATE
     Dosage: 5 MG, QD
     Route: 048
     Dates: start: 201809, end: 201812
  13. LOXONIN [Concomitant]
     Active Substance: LOXOPROFEN SODIUM
     Dosage: UNK
     Dates: start: 201903, end: 201906
  14. SUMILU [Concomitant]
     Active Substance: FELBINAC
     Dosage: UNK
     Dates: start: 20180601, end: 201810
  15. METHYCOBIDE [Concomitant]
     Active Substance: METHYLCOBALAMIN
     Dosage: UNK
     Dates: start: 20180601, end: 201812
  16. PREGABALIN. [Suspect]
     Active Substance: PREGABALIN
     Dosage: 25 MG, BID
     Route: 048
  17. ZOLPIDEM TARTRATE. [Suspect]
     Active Substance: ZOLPIDEM TARTRATE
     Indication: INSOMNIA
     Dosage: 10 MG, QD
     Route: 048
     Dates: start: 2016, end: 201808
  18. ZOLPIDEM TARTRATE. [Suspect]
     Active Substance: ZOLPIDEM TARTRATE
     Dosage: 5 MG, QD
     Route: 048
     Dates: start: 201901
  19. CELECOXIB. [Suspect]
     Active Substance: CELECOXIB
     Dosage: 200 MG, QD
     Route: 065
     Dates: start: 20180601, end: 201808
  20. PREGABALIN. [Suspect]
     Active Substance: PREGABALIN
     Dosage: 150 MG, UNK
     Route: 048
     Dates: start: 201901, end: 20190507
  21. VIVIANT [Suspect]
     Active Substance: BAZEDOXIFENE
     Dosage: 20 MG, QD
     Route: 048
     Dates: start: 201901, end: 201906
  22. MYSLEE [Concomitant]
     Active Substance: ZOLPIDEM TARTRATE
     Dosage: UNK
     Dates: start: 201806, end: 201808

REACTIONS (9)
  - Eczema asteatotic [Unknown]
  - Road traffic accident [Recovered/Resolved]
  - Osteoporosis postmenopausal [Unknown]
  - Insomnia [Unknown]
  - Periarthritis [Unknown]
  - Neuralgia [Unknown]
  - Spinal osteoarthritis [Unknown]
  - Gastroenteritis [Unknown]
  - Disturbance in attention [Recovered/Resolved]

NARRATIVE: CASE EVENT DATE: 2016
